FAERS Safety Report 9858347 (Version 1)
Quarter: 2014Q1

REPORT INFORMATION
  Report Type: Spontaneous
  Country: IT (occurrence: IT)
  Receive Date: 20140131
  Receipt Date: 20140131
  Transmission Date: 20141002
  Serious: Yes (Hospitalization, Other)
  Sender: FDA-Public Use
  Company Number: IT-BAYER-2014-013603

PATIENT
  Age: 35 Year
  Sex: Female

DRUGS (7)
  1. NIFEDIPINE [Suspect]
     Indication: HYPERTENSION
  2. NIFEDIPINE [Suspect]
     Indication: PROTEINURIA
  3. ACETYLSALICYLIC ACID({=100 MG) [Suspect]
     Indication: DIABETES COMPLICATING PREGNANCY
  4. ACETYLSALICYLIC ACID({=100 MG) [Suspect]
     Indication: PROPHYLAXIS
  5. INSULIN [Concomitant]
     Indication: TYPE 1 DIABETES MELLITUS
  6. METHYLDOPA [Concomitant]
     Indication: BLOOD PRESSURE MANAGEMENT
  7. AMINO ACID [Concomitant]

REACTIONS (3)
  - Exposure during pregnancy [None]
  - Proteinuria [None]
  - Blood creatinine increased [None]
